FAERS Safety Report 5872981-0 (Version None)
Quarter: 2008Q3

REPORT INFORMATION
  Report Type: 
  Country: None (occurrence: None)
  Receive Date: 20080905
  Receipt Date: 20080826
  Transmission Date: 20090109
  Serious: Yes (Death)
  Sender: FDA-Public Use
  Company Number: JP-PFIZER INC-2008071896

PATIENT
  Age: 60 Year
  Sex: Male

DRUGS (1)
  1. DIFLUCAN [Suspect]

REACTIONS (1)
  - MUCORMYCOSIS [None]
